FAERS Safety Report 16701614 (Version 1)
Quarter: 2019Q3

REPORT INFORMATION
  Report Type: Spontaneous
  Country: AR (occurrence: AR)
  Receive Date: 20190814
  Receipt Date: 20190814
  Transmission Date: 20191004
  Serious: Yes (Other)
  Sender: FDA-Public Use
  Company Number: AR-PFIZER INC-2019345239

PATIENT
  Age: 11 Year
  Sex: Female

DRUGS (3)
  1. GENOTROPIN [Suspect]
     Active Substance: SOMATROPIN
     Dosage: 1-1.4MG 7 TIMES PER WEEK
     Dates: start: 20081228, end: 20190626
  2. GENOTROPIN [Suspect]
     Active Substance: SOMATROPIN
     Indication: BODY HEIGHT BELOW NORMAL
     Dosage: 1-1.4MG 7 TIMES PER WEEK
     Dates: start: 20081228
  3. GENOTROPIN [Suspect]
     Active Substance: SOMATROPIN
     Dosage: 1-1.4MG 7 TIMES PER WEEK
     Dates: start: 20081228

REACTIONS (1)
  - Uterine cancer [Recovered/Resolved]
